FAERS Safety Report 9143830 (Version 2)
Quarter: 2013Q1

REPORT INFORMATION
  Report Type: Spontaneous
  Country: FR (occurrence: FR)
  Receive Date: 20130306
  Receipt Date: 20130311
  Transmission Date: 20140127
  Serious: Yes (Hospitalization, Disabling)
  Sender: FDA-Public Use
  Company Number: FR-ROCHE-1197832

PATIENT
  Sex: Female

DRUGS (8)
  1. PEGASYS [Suspect]
     Indication: HEPATITIS C
     Route: 058
     Dates: start: 20070925, end: 20080401
  2. DEPAKINE [Concomitant]
     Indication: EPILEPSY
     Dosage: 1 DF IN THE MORNING AND IN THE EVENING
     Route: 065
  3. EPIVIR [Concomitant]
     Indication: HIV INFECTION
     Dosage: 1 DF IN THE MORNING AND IN THE EVENING
     Route: 065
  4. ZIAGEN [Concomitant]
     Indication: HIV INFECTION
  5. ALDACTONE (FRANCE) [Concomitant]
  6. LASILIX [Concomitant]
  7. COVERSYL [Concomitant]
  8. PREVISCAN (FRANCE) [Concomitant]

REACTIONS (1)
  - Pulmonary arterial hypertension [Not Recovered/Not Resolved]
